FAERS Safety Report 14394525 (Version 1)
Quarter: 2018Q1

REPORT INFORMATION
  Report Type: Other
  Country: US (occurrence: US)
  Receive Date: 20180116
  Receipt Date: 20180116
  Transmission Date: 20180509
  Serious: No
  Sender: FDA-Public Use
  Company Number: US-IMPAX LABORATORIES, INC-2016-IPXL-02370

PATIENT
  Sex: Female

DRUGS (1)
  1. BUPROPION XL [Suspect]
     Active Substance: BUPROPION
     Indication: ANXIETY
     Dosage: UNK
     Route: 065

REACTIONS (6)
  - Feeling jittery [Recovered/Resolved]
  - Temperature intolerance [Recovered/Resolved]
  - Hot flush [Recovered/Resolved]
  - Off label use [Unknown]
  - Product substitution issue [Unknown]
  - Depression [Unknown]
